FAERS Safety Report 4523590-7 (Version None)
Quarter: 2004Q4

REPORT INFORMATION
  Report Type: 
  Country: None (occurrence: None)
  Receive Date: 20041210
  Receipt Date: 20041130
  Transmission Date: 20050328
  Serious: Yes (Hospitalization)
  Sender: FDA-Public Use
  Company Number: FR-BRISTOL-MYERS SQUIBB COMPANY-12781902

PATIENT
  Age: 50 Year
  Sex: Female

DRUGS (6)
  1. MODECATE INJ [Suspect]
     Route: 030
     Dates: start: 20041012, end: 20041012
  2. MEPRONIZINE [Suspect]
     Route: 048
     Dates: end: 20041020
  3. RIFATER [Suspect]
     Route: 048
     Dates: start: 20040915
  4. TEMESTA [Suspect]
     Route: 048
     Dates: end: 20041020
  5. HALDOL [Suspect]
     Route: 048
     Dates: end: 20041020
  6. TERCIAN [Concomitant]
     Route: 048
     Dates: end: 20041020

REACTIONS (5)
  - ALANINE AMINOTRANSFERASE INCREASED [None]
  - ASPARTATE AMINOTRANSFERASE INCREASED [None]
  - BLOOD CREATINE PHOSPHOKINASE INCREASED [None]
  - EPILEPSY [None]
  - EXTRAPYRAMIDAL DISORDER [None]
